FAERS Safety Report 14396908 (Version 1)
Quarter: 2018Q1

REPORT INFORMATION
  Report Type: Spontaneous
  Country: US (occurrence: US)
  Receive Date: 20180116
  Receipt Date: 20180116
  Transmission Date: 20180509
  Serious: No
  Sender: FDA-Public Use
  Company Number: US-ALLERGAN-1751698US

PATIENT
  Sex: Female

DRUGS (1)
  1. BOTOX COSMETIC [Suspect]
     Active Substance: ONABOTULINUMTOXINA
     Indication: SKIN WRINKLING
     Dosage: 25 UNITS, SINGLE
     Route: 030
     Dates: start: 2004, end: 2004

REACTIONS (8)
  - Muscle hypertrophy [Unknown]
  - Anxiety [Not Recovered/Not Resolved]
  - Muscle twitching [Recovered/Resolved]
  - Depression [Not Recovered/Not Resolved]
  - Eyelid ptosis [Recovering/Resolving]
  - Influenza like illness [Recovered/Resolved]
  - Tremor [Recovered/Resolved]
  - Facial paralysis [Recovered/Resolved]
